FAERS Safety Report 15925441 (Version 2)
Quarter: 2019Q1

REPORT INFORMATION
  Report Type: Spontaneous
  Country: US (occurrence: US)
  Receive Date: 20190205
  Receipt Date: 20190219
  Transmission Date: 20190417
  Serious: No
  Sender: FDA-Public Use
  Company Number: US-ALLERGAN-1834592US

PATIENT
  Sex: Female

DRUGS (3)
  1. BOTOX [Suspect]
     Active Substance: ONABOTULINUMTOXINA
     Indication: ARTHROPATHY
     Dosage: UNK, SINGLE
     Route: 030
     Dates: start: 20180612, end: 20180612
  2. BOTOX [Suspect]
     Active Substance: ONABOTULINUMTOXINA
     Indication: MIGRAINE
     Dosage: UNK UNK, SINGLE
     Route: 030
     Dates: start: 20180309, end: 20180309
  3. BOTOX [Suspect]
     Active Substance: ONABOTULINUMTOXINA
     Dosage: UNK, SINGLE
     Route: 030
     Dates: start: 2014, end: 2014

REACTIONS (5)
  - Off label use [Unknown]
  - Rotator cuff syndrome [Recovered/Resolved]
  - Drug ineffective [Unknown]
  - Tendon rupture [Recovered/Resolved]
  - Cartilage injury [Recovered/Resolved]
